FAERS Safety Report 23003714 (Version 2)
Quarter: 2024Q2

REPORT INFORMATION
  Report Type: Spontaneous
  Country: US (occurrence: US)
  Receive Date: 20230928
  Receipt Date: 20240430
  Transmission Date: 20240716
  Serious: Yes (Hospitalization, Other)
  Sender: FDA-Public Use
  Company Number: US-SUN PHARMACEUTICAL INDUSTRIES LTD-2023R1-409531

PATIENT
  Age: 63 Year
  Sex: Female

DRUGS (1)
  1. VALPROIC ACID [Suspect]
     Active Substance: VALPROIC ACID
     Indication: Schizoaffective disorder bipolar type
     Dosage: 500 MILLIGRAM, BID
     Route: 065

REACTIONS (3)
  - Hyponatraemia [Unknown]
  - Hallucination, visual [Unknown]
  - Encephalopathy [Unknown]
